FAERS Safety Report 23724098 (Version 1)
Quarter: 2024Q2

REPORT INFORMATION
  Report Type: Spontaneous
  Country: CN (occurrence: CN)
  Receive Date: 20240409
  Receipt Date: 20240409
  Transmission Date: 20240716
  Serious: Yes (Death, Life-Threatening)
  Sender: FDA-Public Use
  Company Number: CN-ELI_LILLY_AND_COMPANY-CN202404002407

PATIENT
  Age: 47 Year
  Sex: Male

DRUGS (6)
  1. PEMETREXED [Suspect]
     Active Substance: PEMETREXED
     Indication: Non-small cell lung cancer
     Dosage: 30 MG, UNKNOWN
     Route: 037
  2. PEMETREXED [Suspect]
     Active Substance: PEMETREXED
     Dosage: 30 MG, UNKNOWN
     Route: 037
  3. PEMETREXED [Suspect]
     Active Substance: PEMETREXED
     Dosage: 30 MG, UNKNOWN
     Route: 037
  4. PEMETREXED [Suspect]
     Active Substance: PEMETREXED
     Dosage: 30 MG, UNKNOWN
     Route: 037
  5. PEMETREXED [Suspect]
     Active Substance: PEMETREXED
     Dosage: 30 MG, UNKNOWN
     Route: 037
  6. FURMONERTINIB [Concomitant]
     Indication: Targeted cancer therapy
     Dosage: 160 MG, DAILY
     Route: 065

REACTIONS (3)
  - Cardiac disorder [Fatal]
  - Myelosuppression [Unknown]
  - Off label use [Unknown]
